FAERS Safety Report 5890281-X (Version None)
Quarter: 2008Q3

REPORT INFORMATION
  Report Type: 
  Country: None (occurrence: None)
  Receive Date: 20080918
  Receipt Date: 20080909
  Transmission Date: 20090109
  Serious: Yes (Other)
  Sender: FDA-Public Use
  Company Number: 20164

PATIENT
  Age: 48 Year

DRUGS (6)
  1. CARBOPLATIN [Suspect]
     Indication: LUNG NEOPLASM MALIGNANT
  2. CARBOPLATIN [Suspect]
     Indication: METASTASES TO LIVER
  3. CISPLATIN [Suspect]
     Indication: LUNG NEOPLASM MALIGNANT
  4. CISPLATIN [Suspect]
     Indication: METASTASES TO LIVER
  5. TAXOL [Suspect]
     Indication: LUNG NEOPLASM MALIGNANT
  6. TAXOL [Suspect]
     Indication: METASTASES TO LIVER

REACTIONS (2)
  - BOWMAN'S MEMBRANE DISORDER [None]
  - DONOR SITE COMPLICATION [None]
